FAERS Safety Report 4969159-1 (Version None)
Quarter: 2006Q2

REPORT INFORMATION
  Report Type: 
  Country: None (occurrence: None)
  Receive Date: 20060411
  Receipt Date: 20051004
  Transmission Date: 20061013
  Serious: No
  Sender: FDA-Public Use
  Company Number: US-BRISTOL-MYERS SQUIBB COMPANY-13132386

PATIENT
  Age: 72 Year
  Sex: Male

DRUGS (4)
  1. PARAPLATIN [Suspect]
     Route: 042
  2. TAXOTERE [Concomitant]
  3. ZOFRAN [Concomitant]
     Indication: PREMEDICATION
  4. DECADRON [Concomitant]
     Indication: PREMEDICATION

REACTIONS (1)
  - EXTRAVASATION [None]
